FAERS Safety Report 5840694-7 (Version None)
Quarter: 2008Q3

REPORT INFORMATION
  Report Type: 
  Country: None (occurrence: None)
  Receive Date: 20080811
  Receipt Date: 20080806
  Transmission Date: 20090109
  Serious: Yes (Life-Threatening)
  Sender: FDA-Public Use
  Company Number: PHBS2008KR05319

PATIENT
  Age: 49 Year
  Sex: Female

DRUGS (2)
  1. CLOZAPINE [Suspect]
     Route: 065
  2. ANTI-PARKINSON AGENTS [Concomitant]

REACTIONS (4)
  - OXYGEN SATURATION DECREASED [None]
  - STRIDOR [None]
  - TRACHEOSTOMY [None]
  - VOCAL CORD PARALYSIS [None]
